FAERS Safety Report 7897892 (Version 4)
Quarter: 2015Q4

REPORT INFORMATION
  Report Type: Spontaneous
  Country: US (occurrence: US)
  Receive Date: 20110413
  Receipt Date: 20151023
  Transmission Date: 20160305
  Serious: Yes (Hospitalization, Other)
  Sender: FDA-Public Use
  Company Number: US-PFIZER INC-2011080649

PATIENT
  Age: 58 Year
  Sex: Female
  Weight: 68.03 kg

DRUGS (3)
  1. ALLOPURINOL. [Concomitant]
     Active Substance: ALLOPURINOL
     Indication: MIGRAINE
     Dosage: 2 DF, UNK
  2. CHANTIX [Suspect]
     Active Substance: VARENICLINE TARTRATE
     Indication: SMOKING CESSATION THERAPY
     Dosage: 0.5 MG, 1X/DAY
     Route: 048
     Dates: start: 201102, end: 20110418
  3. CLONAZEPAM. [Suspect]
     Active Substance: CLONAZEPAM
     Dosage: 5 MG, 2X/DAY
     Route: 048
     Dates: start: 20110419, end: 20110419

REACTIONS (5)
  - Nausea [Unknown]
  - Vertigo [Unknown]
  - Suicide attempt [Unknown]
  - Diplopia [Unknown]
  - Dizziness [Unknown]

NARRATIVE: CASE EVENT DATE: 20110419
